FAERS Safety Report 8390479-5 (Version None)
Quarter: 2012Q2

REPORT INFORMATION
  Report Type: 
  Country: None (occurrence: None)
  Receive Date: 20120529
  Receipt Date: 20120517
  Transmission Date: 20120825
  Serious: Yes (Other)
  Sender: FDA-Public Use
  Company Number: US-COVIDIEN/TYCO HEALTHCARE/MALLINCKRODT-T201201902

PATIENT
  Sex: Female

DRUGS (6)
  1. VERAPAMIL HCL [Concomitant]
     Indication: HYPERTENSION
     Dosage: 240 MG, UNK
  2. LORTAB [Concomitant]
     Indication: BREAKTHROUGH PAIN
     Dosage: 7.5
  3. SYNTHROID [Concomitant]
     Indication: HYPOTHYROIDISM
     Dosage: UNK
  4. ZOLOFT [Concomitant]
     Indication: DEPRESSION
     Dosage: 50 MG, UNK
  5. DEXILANT [Concomitant]
     Indication: GASTROOESOPHAGEAL REFLUX DISEASE
     Dosage: 60 MG, UNK
  6. FENTANYL-100 [Suspect]
     Indication: PAIN
     Dosage: 25 UG/HR, Q 3 DAYS
     Route: 062
     Dates: start: 20120514, end: 20120517

REACTIONS (3)
  - DIZZINESS [None]
  - NAUSEA [None]
  - LOSS OF CONSCIOUSNESS [None]
